FAERS Safety Report 5235689-0 (Version None)
Quarter: 2007Q1

REPORT INFORMATION
  Report Type: 
  Country: None (occurrence: None)
  Receive Date: 20070212
  Receipt Date: 20070129
  Transmission Date: 20070707
  Serious: Yes (Death)
  Sender: FDA-Public Use
  Company Number: SE-ROCHE-481283

PATIENT
  Age: 54 Year
  Sex: Male

DRUGS (18)
  1. CYMEVENE [Suspect]
     Dosage: THERAPY COMPLETED DUE TO NEGATIVE CMV PCR
     Route: 042
     Dates: start: 20011127, end: 20011210
  2. CYMEVENE [Suspect]
     Dosage: DOSE FREQUENCY REPORTED AS X2
     Route: 042
     Dates: start: 20020108
  3. CELLCEPT [Suspect]
     Indication: DRUG USE FOR UNKNOWN INDICATION
     Route: 065
  4. PHENOXYMETHYL PENICILLIN [Suspect]
     Indication: DRUG USE FOR UNKNOWN INDICATION
     Route: 065
  5. INTERFERON BETA-1A [Suspect]
     Indication: DRUG USE FOR UNKNOWN INDICATION
     Route: 065
  6. VANCOMYCIN HYDROCHLORIDE [Concomitant]
  7. FK463 [Concomitant]
     Dosage: REPLACED VANCOMYCIN AND AMBIZOME
  8. AMPICILLIN [Concomitant]
  9. CEFTAZIDIME [Concomitant]
  10. CIPROFLOXACIN [Concomitant]
  11. METRONIDAZOLE [Concomitant]
  12. NETILMICIN SULFATE [Concomitant]
  13. OMEPRAZOLE [Concomitant]
  14. FUROSEMIDE [Concomitant]
  15. MEROPENEM [Concomitant]
  16. MYCOSTATIN [Concomitant]
  17. PREDNISOLONE [Concomitant]
  18. TIENAM [Concomitant]

REACTIONS (14)
  - ABDOMINAL DISTENSION [None]
  - ABDOMINAL PAIN [None]
  - ARTERIOSCLEROSIS CORONARY ARTERY [None]
  - FATIGUE [None]
  - HAEMORRHAGE [None]
  - HYPOTENSION [None]
  - LIVER DISORDER [None]
  - MULTI-ORGAN FAILURE [None]
  - PANCREATITIS HAEMORRHAGIC [None]
  - PANCYTOPENIA [None]
  - PULMONARY OEDEMA [None]
  - TACHYCARDIA [None]
  - TACHYPNOEA [None]
  - VENTRICULAR HYPERTROPHY [None]
